FAERS Safety Report 7437925-9 (Version None)
Quarter: 2011Q2

REPORT INFORMATION
  Report Type: 
  Country: None (occurrence: None)
  Receive Date: 20110426
  Receipt Date: 20110422
  Transmission Date: 20111010
  Serious: Yes (Other)
  Sender: FDA-Public Use
  Company Number: JP-PFIZER INC-2011082649

PATIENT
  Age: 67 Year
  Sex: Female

DRUGS (1)
  1. NORVASC [Suspect]
     Dosage: 10 MG, 1X/DAY

REACTIONS (1)
  - HYPONATRAEMIA [None]
